FAERS Safety Report 19687630 (Version 1)
Quarter: 2021Q3

REPORT INFORMATION
  Report Type: Spontaneous
  Country: GB (occurrence: GB)
  Receive Date: 20210812
  Receipt Date: 20210812
  Transmission Date: 20211014
  Serious: Yes (Other)
  Sender: FDA-Public Use
  Company Number: GB-AUROBINDO-AUR-APL-2021-034223

PATIENT
  Sex: Female

DRUGS (1)
  1. AMOXICILLIN+CLAVULANIC ACID FILM?COATED TABLETS [Suspect]
     Active Substance: AMOXICILLIN\CLAVULANIC ACID
     Indication: DIVERTICULITIS
     Dosage: 500MG/125MG
     Route: 065

REACTIONS (5)
  - Diverticulitis [Unknown]
  - Diarrhoea haemorrhagic [Unknown]
  - Gout [Unknown]
  - Abdominal pain [Unknown]
  - Mucous stools [Unknown]
